FAERS Safety Report 9498482 (Version 7)
Quarter: 2014Q2

REPORT INFORMATION
  Report Type: Report from Study
  Country: US (occurrence: US)
  Receive Date: 20130904
  Receipt Date: 20140630
  Transmission Date: 20141212
  Serious: Yes (Hospitalization)
  Sender: FDA-Public Use
  Company Number: US-GLAXOSMITHKLINE-A1005533A

PATIENT
  Sex: Male

DRUGS (6)
  1. SEREVENT [Suspect]
     Indication: CHRONIC OBSTRUCTIVE PULMONARY DISEASE
     Route: 065
  2. ALBUTEROL [Suspect]
     Indication: CHRONIC OBSTRUCTIVE PULMONARY DISEASE
     Route: 065
  3. CPAP [Suspect]
     Indication: PRODUCT USED FOR UNKNOWN INDICATION
     Route: 065
  4. PREDNISONE [Suspect]
     Indication: PRODUCT USED FOR UNKNOWN INDICATION
     Route: 065
  5. ALBUTEROL [Suspect]
     Indication: CHRONIC OBSTRUCTIVE PULMONARY DISEASE
     Route: 065
  6. INSULIN [Concomitant]

REACTIONS (12)
  - Lung infection [Unknown]
  - Dyspnoea [Unknown]
  - Dry mouth [Recovering/Resolving]
  - Tooth disorder [Unknown]
  - Sleep disorder [Unknown]
  - Blood glucose increased [Unknown]
  - Psoriasis [Unknown]
  - Skin ulcer [Unknown]
  - Anaemia [Not Recovered/Not Resolved]
  - Adverse event [Unknown]
  - Investigation [Unknown]
  - Surgery [Unknown]
